FAERS Safety Report 25177164 (Version 1)
Quarter: 2025Q2

REPORT INFORMATION
  Report Type: Other
  Country: BR (occurrence: BR)
  Receive Date: 20250409
  Receipt Date: 20250409
  Transmission Date: 20250717
  Serious: Yes (Hospitalization)
  Sender: ANI
  Company Number: BR-ANIPHARMA-022288

PATIENT
  Age: 38 Week
  Sex: Female

DRUGS (3)
  1. CLARITHROMYCIN [Suspect]
     Active Substance: CLARITHROMYCIN
     Indication: Respiratory tract infection
  2. CAFFEINE [Concomitant]
     Active Substance: CAFFEINE
     Indication: Apnoea
  3. CAFFEINE [Concomitant]
     Active Substance: CAFFEINE
     Indication: Apnoea

REACTIONS (2)
  - Hyperlactacidaemia [Recovering/Resolving]
  - Drug interaction [Unknown]
